FAERS Safety Report 8790029 (Version 1)
Quarter: 2012Q4

REPORT INFORMATION
  Report Type: Report from Study
  Country: JP (occurrence: JP)
  Receive Date: 20120917
  Receipt Date: 20120917
  Transmission Date: 20130627
  Serious: Yes (Other)
  Sender: FDA-Public Use
  Company Number: JP-VERTEX PHARMACEUTICAL INC.-2012-021003

PATIENT
  Age: 59 Year
  Sex: Female

DRUGS (20)
  1. VX-950 [Suspect]
     Indication: HEPATITIS C
     Dosage: 2250 mg, qd
     Route: 048
     Dates: start: 20120525, end: 20120607
  2. VX-950 [Suspect]
     Dosage: 1500 mg, qd
     Route: 048
     Dates: start: 20120608, end: 20120816
  3. REBETOL [Suspect]
     Indication: HEPATITIS C
     Dosage: 1000 mg, qd
     Route: 048
     Dates: start: 20120525, end: 20120607
  4. REBETOL [Suspect]
     Dosage: 800 mg, qd
     Route: 048
     Dates: start: 20120608, end: 20120614
  5. REBETOL [Suspect]
     Dosage: 600 mg, qd
     Route: 048
     Dates: start: 20120615, end: 20120628
  6. REBETOL [Suspect]
     Dosage: 400 mg, qd
     Route: 048
     Dates: start: 20120629
  7. PEGINTRON                          /01543001/ [Suspect]
     Indication: HEPATITIS C
     Dosage: 1.35 UNK, UNK
     Route: 058
     Dates: start: 20120525, end: 20120601
  8. PEGINTRON                          /01543001/ [Suspect]
     Dosage: 0.70, UNK
     Route: 058
     Dates: start: 20120608
  9. LOXONIN [Concomitant]
     Dosage: 60 mg, prn
     Route: 048
     Dates: start: 20120526
  10. REBAMIPIDE [Concomitant]
     Dosage: 100 mg, qd
     Route: 048
     Dates: start: 20120526
  11. ANTEBATE [Concomitant]
     Dosage: 10 g, UNK
     Route: 061
     Dates: start: 20120528
  12. TALION                             /01587402/ [Concomitant]
     Dosage: 20 mg, qd
     Route: 048
     Dates: start: 20120528
  13. ATARAX                             /00058401/ [Concomitant]
     Dosage: 25 mg, qd
     Route: 048
     Dates: start: 20120531
  14. ATARAX                             /00058401/ [Concomitant]
     Dosage: 25 mg, prn
     Route: 048
  15. PREDNISOLONE [Concomitant]
     Dosage: 5 mg, qd
     Route: 048
     Dates: start: 20120602, end: 20120605
  16. PREDNISOLONE [Concomitant]
     Dosage: 10 mg, qd
     Route: 048
     Dates: start: 20120713, end: 20120719
  17. ALLELOCK [Concomitant]
     Dosage: 10 mg, qd
     Route: 048
     Dates: start: 20120706
  18. CELESTAMINE                        /00252801/ [Concomitant]
     Dosage: 1 DF, UNK
     Route: 048
     Dates: start: 20120706
  19. BONALON [Concomitant]
     Dosage: 35 mg, qd
     Route: 048
     Dates: start: 20120720
  20. ALLOPURINOL [Suspect]
     Dosage: 200 mg, qd
     Route: 048

REACTIONS (1)
  - Renal impairment [Recovered/Resolved]
